FAERS Safety Report 12771542 (Version 1)
Quarter: 2016Q3

REPORT INFORMATION
  Report Type: Spontaneous
  Country: US (occurrence: US)
  Receive Date: 20160920
  Receipt Date: 20160920
  Transmission Date: 20161109
  Serious: No
  Sender: FDA-Public Use
  Company Number: None

PATIENT
  Age: 61 Year
  Sex: Male

DRUGS (12)
  1. ESCITALOPRAM [Concomitant]
     Active Substance: ESCITALOPRAM OXALATE
  2. XENAZINE [Suspect]
     Active Substance: TETRABENAZINE
     Indication: HUNTINGTON^S DISEASE
     Dosage: XENAZINE 2 TABS (25 MG) - PO - TID
     Route: 048
     Dates: start: 201602
  3. FLUTICASONE [Concomitant]
     Active Substance: FLUTICASONE\FLUTICASONE PROPIONATE
  4. CETIRIZINE [Concomitant]
     Active Substance: CETIRIZINE HYDROCHLORIDE
  5. TAMSULOSIN [Suspect]
     Active Substance: TAMSULOSIN
  6. ZOLPIDEM [Concomitant]
     Active Substance: ZOLPIDEM\ZOLPIDEM TARTRATE
  7. ATORVASTATIN [Concomitant]
     Active Substance: ATORVASTATIN
  8. ALBUTEROL. [Concomitant]
     Active Substance: ALBUTEROL
  9. OXYBUTYNIN [Suspect]
     Active Substance: OXYBUTYNIN
  10. BUPROPION. [Concomitant]
     Active Substance: BUPROPION
  11. BUSPIRONE [Concomitant]
     Active Substance: BUSPIRONE HYDROCHLORIDE
  12. OMEPRAZOLE. [Concomitant]
     Active Substance: OMEPRAZOLE

REACTIONS (2)
  - Fatigue [None]
  - Therapy change [None]

NARRATIVE: CASE EVENT DATE: 201609
